FAERS Safety Report 13029216 (Version 1)
Quarter: 2016Q4

REPORT INFORMATION
  Report Type: Spontaneous
  Country: US (occurrence: US)
  Receive Date: 20161215
  Receipt Date: 20161215
  Transmission Date: 20170207
  Serious: Yes (Life-Threatening, Hospitalization)
  Sender: FDA-Public Use
  Company Number: US-ASTRAZENECA-2016SF31703

PATIENT
  Age: 24 Year
  Sex: Male

DRUGS (6)
  1. QUETIAPINE. [Suspect]
     Active Substance: QUETIAPINE
     Route: 048
  2. CYCLOBENZAPRINE [Suspect]
     Active Substance: CYCLOBENZAPRINE
     Route: 048
  3. DIVALPROEX [Suspect]
     Active Substance: DIVALPROEX SODIUM
     Route: 048
  4. ALCOHOL. [Suspect]
     Active Substance: ALCOHOL
     Route: 048
  5. ATENOLOL. [Suspect]
     Active Substance: ATENOLOL
     Route: 048
  6. PRAZOSIN [Suspect]
     Active Substance: PRAZOSIN
     Route: 048

REACTIONS (6)
  - Acute respiratory distress syndrome [Recovered/Resolved]
  - Vasoplegia syndrome [Recovered/Resolved]
  - Shock [Recovered/Resolved]
  - Aspiration [Recovered/Resolved]
  - Overdose [Unknown]
  - Sinus bradycardia [Recovered/Resolved]
